FAERS Safety Report 8447656-4 (Version None)
Quarter: 2012Q2

REPORT INFORMATION
  Report Type: 
  Country: None (occurrence: None)
  Receive Date: 20120619
  Receipt Date: 20120611
  Transmission Date: 20120825
  Serious: Yes (Other)
  Sender: FDA-Public Use
  Company Number: US-PFIZER INC-2012140420

PATIENT
  Sex: Male
  Weight: 74.83 kg

DRUGS (5)
  1. LYRICA [Suspect]
     Indication: BONE PAIN
  2. LYRICA [Suspect]
     Indication: ARTHRITIS
     Dosage: 50 MG, 3X/DAY
     Route: 048
  3. FUROSEMIDE [Concomitant]
     Indication: DIURETIC THERAPY
     Dosage: 8 MG, DAILY
  4. XALATAN [Suspect]
     Dosage: UNK
     Route: 047
  5. CELEBREX [Suspect]
     Indication: ARTHRALGIA
     Dosage: 200 MG, DAILY
     Route: 048

REACTIONS (4)
  - HEARING IMPAIRED [None]
  - EAR DISORDER [None]
  - VISUAL ACUITY REDUCED [None]
  - PAIN [None]
